FAERS Safety Report 25864634 (Version 2)
Quarter: 2025Q4

REPORT INFORMATION
  Report Type: Spontaneous
  Country: US (occurrence: US)
  Receive Date: 20250930
  Receipt Date: 20251017
  Transmission Date: 20260118
  Serious: Yes (Hospitalization, Disabling, Other)
  Sender: NOVO NORDISK
  Company Number: US-NOVOPROD-1528054

PATIENT
  Sex: Female

DRUGS (1)
  1. OZEMPIC [Suspect]
     Active Substance: SEMAGLUTIDE
     Indication: Product used for unknown indication
     Dosage: 2 MG, QW

REACTIONS (9)
  - Hypertension [Recovered/Resolved]
  - Disability [Unknown]
  - Loss of consciousness [Unknown]
  - Dizziness [Unknown]
  - Back disorder [Unknown]
  - Hypoaesthesia [Unknown]
  - Anxiety [Unknown]
  - Increased appetite [Unknown]
  - Product dose omission issue [Unknown]
